FAERS Safety Report 9486655 (Version 1)
Quarter: 2013Q3

REPORT INFORMATION
  Report Type: Spontaneous
  Country: US (occurrence: US)
  Receive Date: 20130829
  Receipt Date: 20130829
  Transmission Date: 20140515
  Serious: Yes (Hospitalization, Disabling, Other)
  Sender: FDA-Public Use
  Company Number: US-009507513-1308USA008356

PATIENT
  Sex: Female
  Weight: 58.96 kg

DRUGS (3)
  1. FOSAMAX [Suspect]
     Indication: OSTEOPOROSIS
     Dosage: 10 MG, QD OR PRN
     Route: 048
     Dates: start: 19951205
  2. FOSAMAX [Suspect]
     Indication: OSTEOPENIA
  3. MEPROBAMATE [Concomitant]
     Dosage: 400 MG, HS

REACTIONS (17)
  - Femur fracture [Not Recovered/Not Resolved]
  - Intramedullary rod insertion [Unknown]
  - Malignant melanoma [Unknown]
  - Appendicectomy [Unknown]
  - Haemoglobin decreased [Unknown]
  - Foot fracture [Unknown]
  - Hyperhidrosis [Unknown]
  - Insomnia [Recovering/Resolving]
  - Hypertension [Unknown]
  - Hypercholesterolaemia [Unknown]
  - Arthropathy [Unknown]
  - Sciatica [Unknown]
  - Drug intolerance [Unknown]
  - Inappropriate schedule of drug administration [Unknown]
  - Inappropriate schedule of drug administration [Unknown]
  - Back pain [Unknown]
  - Drug ineffective [Unknown]
